FAERS Safety Report 7427240-1 (Version None)
Quarter: 2011Q2

REPORT INFORMATION
  Report Type: 
  Country: None (occurrence: None)
  Receive Date: 20110420
  Receipt Date: 20110415
  Transmission Date: 20111010
  Serious: Yes (Hospitalization, Other)
  Sender: FDA-Public Use
  Company Number: US-PFIZER INC-2011083075

PATIENT
  Sex: Male

DRUGS (4)
  1. ADVIL LIQUI-GELS [Suspect]
     Indication: MUSCULOSKELETAL PAIN
     Dosage: UNK
  2. REBIF [Suspect]
     Dosage: 44 MCG, 3 TIMES A WEEK
     Route: 058
     Dates: start: 20110404
  3. REBIF [Suspect]
     Indication: MULTIPLE SCLEROSIS
     Dosage: 44 MCG, 3 TIMES PER WEEK
     Route: 058
     Dates: start: 20091214
  4. ASPIRIN [Suspect]
     Indication: MUSCULOSKELETAL PAIN
     Dosage: UNK

REACTIONS (3)
  - INTESTINAL ULCER PERFORATION [None]
  - DIARRHOEA [None]
  - DISCOMFORT [None]
